FAERS Safety Report 14664341 (Version 1)
Quarter: 2018Q1

REPORT INFORMATION
  Report Type: Report from Study
  Country: ES (occurrence: ES)
  Receive Date: 20180321
  Receipt Date: 20180321
  Transmission Date: 20180509
  Serious: Yes (Life-Threatening, Hospitalization)
  Sender: FDA-Public Use
  Company Number: ES-PFIZER INC-2018111081

PATIENT
  Age: 13 Year
  Sex: Male
  Weight: 38.3 kg

DRUGS (5)
  1. VINCRISTINE SULFATE. [Interacting]
     Active Substance: VINCRISTINE SULFATE
     Indication: BURKITT^S LYMPHOMA STAGE IV
     Dosage: 2 MG, 1X/DAY
     Route: 042
     Dates: start: 20160426, end: 20160428
  2. RITUXIMAB. [Interacting]
     Active Substance: RITUXIMAB
     Indication: BURKITT^S LYMPHOMA STAGE IV
     Dosage: 472 MG, ALTERNATE DAY
     Route: 042
     Dates: start: 20160426, end: 20160429
  3. CICLOFOSFAMIDA [Interacting]
     Active Substance: CYCLOPHOSPHAMIDE
     Indication: BURKITT^S LYMPHOMA STAGE IV
     Dosage: 315 MG, 1X/DAY
     Route: 042
     Dates: start: 20160426, end: 20160502
  4. DOXORUBICIN HCL [Suspect]
     Active Substance: DOXORUBICIN HYDROCHLORIDE
     Indication: BURKITT^S LYMPHOMA STAGE IV
     Dosage: 75.6 MG, 1X/DAY
     Route: 042
     Dates: start: 20160426, end: 20160429
  5. METHOTREXATE SODIUM. [Interacting]
     Active Substance: METHOTREXATE SODIUM
     Indication: BURKITT^S LYMPHOMA STAGE IV
     Dosage: 3800 MG, 1X/DAY
     Route: 042
     Dates: start: 20160426, end: 20160429

REACTIONS (3)
  - Febrile neutropenia [Recovered/Resolved]
  - Drug interaction [Recovered/Resolved]
  - Stomatitis [Recovered/Resolved]

NARRATIVE: CASE EVENT DATE: 20160507
